FAERS Safety Report 19116876 (Version 1)
Quarter: 2021Q2

REPORT INFORMATION
  Report Type: Spontaneous
  Country: US (occurrence: US)
  Receive Date: 20210409
  Receipt Date: 20210409
  Transmission Date: 20210717
  Serious: Yes (Life-Threatening, Hospitalization, Other)
  Sender: FDA-Public Use
  Company Number: US-BAYER-2021-115667

PATIENT
  Age: 52 Year
  Sex: Female

DRUGS (1)
  1. MIRALAX [Suspect]
     Active Substance: POLYETHYLENE GLYCOL 3350
     Dosage: 17 G
     Route: 048

REACTIONS (19)
  - Fluid retention [None]
  - Rhinorrhoea [None]
  - Skin disorder [None]
  - Thirst [None]
  - Dyspnoea [None]
  - Sleep apnoea syndrome [None]
  - Syncope [None]
  - Palpitations [None]
  - Heart rate increased [None]
  - Abdominal distension [None]
  - Vomiting [None]
  - Cardiac arrest [None]
  - Nausea [None]
  - Dyspepsia [None]
  - Abdominal pain [None]
  - Dizziness [None]
  - Hypertension [None]
  - Lung disorder [None]
  - Throat tightness [None]
